FAERS Safety Report 5902839-X (Version None)
Quarter: 2008Q3

REPORT INFORMATION
  Report Type: 
  Country: None (occurrence: None)
  Receive Date: 20080930
  Receipt Date: 20080926
  Transmission Date: 20090109
  Serious: Yes (Hospitalization)
  Sender: FDA-Public Use
  Company Number: FR-WYE-G02237308

PATIENT
  Sex: Female

DRUGS (18)
  1. TAZOCILLINE [Suspect]
     Indication: PROPHYLAXIS
     Dosage: UNKNOWN
     Route: 042
     Dates: start: 20080609, end: 20080613
  2. VANCOMYCIN HYDROCHLORIDE [Suspect]
     Indication: PROPHYLAXIS
     Dosage: UNKNOWN
     Route: 042
     Dates: start: 20080604, end: 20080615
  3. TIENAM [Suspect]
     Indication: PROPHYLAXIS
     Dosage: UNKNOWN
     Route: 042
     Dates: start: 20080604, end: 20080616
  4. FUNGIZONE [Suspect]
     Indication: PROPHYLAXIS
     Dosage: UNKNOWN
     Route: 042
     Dates: start: 20080604, end: 20080612
  5. LOVENOX [Suspect]
     Dosage: UNKNOWN
     Route: 058
     Dates: start: 20080606, end: 20080612
  6. TENORMIN [Concomitant]
     Route: 048
     Dates: start: 20060801
  7. COAPROVEL [Concomitant]
     Dosage: 300 MG TOTAL DAILY
     Route: 048
     Dates: start: 20060801
  8. ZANIDIP [Concomitant]
     Route: 048
     Dates: start: 20060901
  9. NEUPOGEN [Concomitant]
     Route: 058
     Dates: start: 20080606
  10. PLITICAN [Concomitant]
     Dosage: UNKNOWN
     Route: 042
     Dates: start: 20080604
  11. STILNOX [Concomitant]
     Route: 048
     Dates: start: 20060101
  12. ACETAMINOPHEN [Concomitant]
     Dosage: UNKNOWN
     Route: 048
  13. TOPALGIC [Concomitant]
     Dosage: UNKNOWN
     Route: 048
  14. LAMALINE [Concomitant]
     Dosage: UNKNOWN
  15. TEMGESIC [Concomitant]
     Dosage: UNKNOWN
  16. PURSENNIDE [Concomitant]
     Dosage: UNKNOWN
  17. ACUPAN [Concomitant]
     Dosage: UNKNOWN
  18. NEXIUM [Suspect]
     Dosage: UNKNOWN
     Route: 048
     Dates: start: 20080602, end: 20080612

REACTIONS (8)
  - ASTHENIA [None]
  - ERYTHEMA [None]
  - PANCYTOPENIA [None]
  - PRURITUS [None]
  - PYREXIA [None]
  - RASH [None]
  - SKIN PLAQUE [None]
  - SKIN WARM [None]
